FAERS Safety Report 12499684 (Version 1)
Quarter: 2016Q2

REPORT INFORMATION
  Report Type: Spontaneous
  Country: GR (occurrence: GR)
  Receive Date: 20160627
  Receipt Date: 20160627
  Transmission Date: 20160815
  Serious: Yes (Other)
  Sender: FDA-Public Use
  Company Number: GR-WARNER CHILCOTT, LLC-1054338

PATIENT
  Age: 57 Year
  Sex: Female

DRUGS (2)
  1. CALCIORAL D3 [Concomitant]
     Dates: start: 201602
  2. ACTONEL [Suspect]
     Active Substance: RISEDRONATE SODIUM
     Indication: OSTEOPOROSIS POSTMENOPAUSAL
     Route: 048
     Dates: start: 201602

REACTIONS (1)
  - Alopecia [Not Recovered/Not Resolved]
